FAERS Safety Report 8998459 (Version 1)
Quarter: 2013Q1

REPORT INFORMATION
  Report Type: Spontaneous
  Country: US (occurrence: US)
  Receive Date: 20130103
  Receipt Date: 20130103
  Transmission Date: 20140127
  Serious: Yes (Other)
  Sender: FDA-Public Use
  Company Number: US-TEVA-378488USA

PATIENT
  Age: 57 Year
  Sex: Female

DRUGS (3)
  1. CETIRIZINE [Suspect]
     Indication: URTICARIA
     Dosage: 10 MG
     Route: 065
  2. FEXOFENADINE [Concomitant]
     Indication: URTICARIA
     Route: 065
  3. RANITIDINE [Concomitant]
     Indication: URTICARIA
     Dosage: 300MG
     Route: 065

REACTIONS (2)
  - Hepatotoxicity [Recovered/Resolved]
  - Hepatitis acute [Recovered/Resolved]
